FAERS Safety Report 11118906 (Version 1)
Quarter: 2015Q2

REPORT INFORMATION
  Report Type: Spontaneous
  Country: IT (occurrence: IT)
  Receive Date: 20150518
  Receipt Date: 20150518
  Transmission Date: 20150821
  Serious: Yes (Other)
  Sender: FDA-Public Use
  Company Number: IT-TEVA-562763ACC

PATIENT
  Age: 58 Year
  Sex: Female

DRUGS (2)
  1. GEMCITABINA ACCORD - 100 MG/ML CONCENTRATO PER SOLUZIONE PER INFUSIONE [Suspect]
     Active Substance: GEMCITABINE HYDROCHLORIDE
     Indication: OVARIAN CANCER
     Dosage: 1540 MG CYCLICAL
     Route: 042
     Dates: start: 20150212, end: 20150316
  2. CARBOPLATINO TEVA - 10 MG/ML - TEVA PHARMA B.V. [Suspect]
     Active Substance: CARBOPLATIN
     Indication: OVARIAN CANCER
     Dosage: 410 MG CYCLICAL
     Route: 042
     Dates: start: 20150212, end: 20150316

REACTIONS (4)
  - Hypersensitivity [Recovered/Resolved]
  - Band sensation [Recovered/Resolved]
  - Hypertensive crisis [Recovered/Resolved]
  - Bronchostenosis [Recovered/Resolved]

NARRATIVE: CASE EVENT DATE: 20150316
